FAERS Safety Report 7153149-7 (Version None)
Quarter: 2010Q4

REPORT INFORMATION
  Report Type: 
  Country: None (occurrence: None)
  Receive Date: 20101213
  Receipt Date: 20101207
  Transmission Date: 20110411
  Serious: Yes (Other)
  Sender: FDA-Public Use
  Company Number: DE-PFIZER INC-2010166602

PATIENT
  Age: 69 Year
  Sex: Male

DRUGS (4)
  1. CAVERJECT [Suspect]
     Indication: ERECTILE DYSFUNCTION
     Dosage: UNK
     Route: 017
     Dates: start: 20100101
  2. ASPIRIN [Concomitant]
     Dosage: UNK
  3. LEVOTHYROXINE SODIUM [Concomitant]
     Dosage: UNK
  4. APROVEL [Concomitant]
     Dosage: UNK

REACTIONS (4)
  - EYE INJURY [None]
  - FALL [None]
  - SKELETAL INJURY [None]
  - SYNCOPE [None]
